FAERS Safety Report 19841944 (Version 4)
Quarter: 2022Q3

REPORT INFORMATION
  Report Type: Report from Study
  Country: US (occurrence: US)
  Receive Date: 20210916
  Receipt Date: 20220825
  Transmission Date: 20221026
  Serious: Yes (Hospitalization)
  Sender: FDA-Public Use
  Company Number: NVSC2021US207589

PATIENT
  Age: 41 Year
  Sex: Female
  Weight: 91.61 kg

DRUGS (4)
  1. TREPROSTINIL [Suspect]
     Active Substance: TREPROSTINIL
     Indication: Pulmonary arterial hypertension
     Dosage: 118 NG/KG/MIN, CONT
     Route: 042
     Dates: start: 20210709
  2. TREPROSTINIL [Suspect]
     Active Substance: TREPROSTINIL
     Dosage: 126 NG/KG/MIN, CONT
     Route: 042
  3. ADEMPAS [Suspect]
     Active Substance: RIOCIGUAT
     Indication: Product used for unknown indication
     Dosage: UNK
     Route: 065
  4. ADEMPAS [Suspect]
     Active Substance: RIOCIGUAT
     Dosage: 0.5 MG, TID
     Route: 065

REACTIONS (4)
  - COVID-19 [Unknown]
  - Blood pressure abnormal [Unknown]
  - Illness [Unknown]
  - Ear discomfort [Unknown]

NARRATIVE: CASE EVENT DATE: 20210909
